FAERS Safety Report 13666300 (Version 1)
Quarter: 2017Q2

REPORT INFORMATION
  Report Type: Spontaneous
  Country: US (occurrence: US)
  Receive Date: 20170619
  Receipt Date: 20170619
  Transmission Date: 20170830
  Serious: No
  Sender: FDA-Public Use
  Company Number: US-ROCHE-653777

PATIENT
  Sex: Male

DRUGS (12)
  1. XELODA [Suspect]
     Active Substance: CAPECITABINE
     Route: 048
  2. GLIBENCLAMIDE [Concomitant]
     Active Substance: GLYBURIDE
     Route: 065
  3. NORVASC [Concomitant]
     Active Substance: AMLODIPINE BESYLATE
     Route: 065
  4. XELODA [Suspect]
     Active Substance: CAPECITABINE
     Route: 048
     Dates: start: 200903, end: 200911
  5. SOTALOL. [Concomitant]
     Active Substance: SOTALOL
     Dosage: DRUG GIVEN AS SOTOLOL.
     Route: 065
  6. TEMAZEPAM. [Concomitant]
     Active Substance: TEMAZEPAM
     Route: 065
  7. INSULIN [Concomitant]
     Active Substance: INSULIN NOS
     Route: 065
  8. LASIX [Concomitant]
     Active Substance: FUROSEMIDE
     Route: 065
  9. XELODA [Suspect]
     Active Substance: CAPECITABINE
     Indication: PANCREATIC CARCINOMA
     Dosage: 2 WEEKS ON AND ONE WEEK OFF
     Route: 048
  10. DIOVAN [Concomitant]
     Active Substance: VALSARTAN
     Route: 065
  11. LIPITOR [Concomitant]
     Active Substance: ATORVASTATIN CALCIUM
     Route: 065
  12. BABY ASA [Concomitant]
     Active Substance: ASPIRIN
     Route: 065

REACTIONS (6)
  - Feeling abnormal [Unknown]
  - Onychalgia [Not Recovered/Not Resolved]
  - Oral mucosal blistering [Recovered/Resolved]
  - Nausea [Recovering/Resolving]
  - Skin fissures [Not Recovered/Not Resolved]
  - Skin wrinkling [Not Recovered/Not Resolved]
